FAERS Safety Report 6825366-4 (Version None)
Quarter: 2010Q3

REPORT INFORMATION
  Report Type: 
  Country: None (occurrence: None)
  Receive Date: 20100708
  Receipt Date: 20061213
  Transmission Date: 20110219
  Serious: No
  Sender: FDA-Public Use
  Company Number: US-PFIZER INC-2006154248

PATIENT
  Sex: Female
  Weight: 84.8 kg

DRUGS (8)
  1. CHANTIX [Suspect]
     Indication: SMOKING CESSATION THERAPY
     Dosage: 2 EVERY NA DAYS
     Route: 048
     Dates: start: 20060101
  2. LINSEED OIL [Concomitant]
     Route: 048
  3. ACETYLSALICYLIC ACID [Concomitant]
     Route: 048
  4. ALDACTAZIDE [Concomitant]
     Route: 048
  5. VYTORIN [Concomitant]
     Route: 048
  6. KLOR-CON [Concomitant]
     Route: 048
  7. ESTRADIOL [Concomitant]
     Route: 048
  8. AMBIEN [Concomitant]
     Route: 048

REACTIONS (9)
  - ABDOMINAL DISCOMFORT [None]
  - ABNORMAL FAECES [None]
  - DEPRESSION [None]
  - FAECES PALE [None]
  - FLATULENCE [None]
  - FREQUENT BOWEL MOVEMENTS [None]
  - HEADACHE [None]
  - NAUSEA [None]
  - SWELLING [None]
